FAERS Safety Report 18359148 (Version 1)
Quarter: 2020Q4

REPORT INFORMATION
  Report Type: Spontaneous
  Country: US (occurrence: US)
  Receive Date: 20201008
  Receipt Date: 20201008
  Transmission Date: 20210114
  Serious: Yes (Hospitalization)
  Sender: FDA-Public Use
  Company Number: US-INDIVIOR EUROPE LIMITED-INDV-122403-2019

PATIENT
  Age: 59 Year
  Sex: Male

DRUGS (4)
  1. SUBUTEX [Suspect]
     Active Substance: BUPRENORPHINE HYDROCHLORIDE
     Indication: DRUG USE DISORDER
     Dosage: 16MG + ANOTHER UNSPECIFIED DOSE
     Route: 060
     Dates: start: 201905, end: 201905
  2. MS CONTIN [Suspect]
     Active Substance: MORPHINE SULFATE
     Dosage: 70 TABLETS A MONTH
     Route: 065
  3. SUBUTEX [Suspect]
     Active Substance: BUPRENORPHINE HYDROCHLORIDE
     Dosage: 16 MILLIGRAM, QD
     Route: 060
     Dates: start: 201905
  4. MS CONTIN [Suspect]
     Active Substance: MORPHINE SULFATE
     Indication: PRODUCT USED FOR UNKNOWN INDICATION
     Dosage: 90 TABLETS A MONTH
     Route: 065

REACTIONS (2)
  - Hyperhidrosis [Unknown]
  - Drug withdrawal syndrome [Unknown]

NARRATIVE: CASE EVENT DATE: 2019
